FAERS Safety Report 20715017 (Version 1)
Quarter: 2022Q2

REPORT INFORMATION
  Report Type: Spontaneous
  Country: CA (occurrence: CA)
  Receive Date: 20220415
  Receipt Date: 20220415
  Transmission Date: 20220720
  Serious: Yes (Hospitalization, Other)
  Sender: FDA-Public Use
  Company Number: CA-PFIZER INC-202200539654

PATIENT
  Age: 69 Year
  Sex: Male

DRUGS (11)
  1. MIDAZOLAM [Suspect]
     Active Substance: MIDAZOLAM
     Indication: Colonoscopy
     Dosage: 4 MG, SINGLE
     Route: 042
  2. MIDAZOLAM [Suspect]
     Active Substance: MIDAZOLAM
     Indication: Sedative therapy
  3. FENTANYL [Suspect]
     Active Substance: FENTANYL
     Indication: Colonoscopy
     Dosage: 100 UG/KG, SINGLE
     Route: 042
  4. FENTANYL [Suspect]
     Active Substance: FENTANYL
     Indication: Sedative therapy
  5. ATORVASTATIN [Concomitant]
     Active Substance: ATORVASTATIN
     Route: 065
  6. ASPIRIN [Concomitant]
     Active Substance: ASPIRIN
  7. IRBESARTAN [Concomitant]
     Active Substance: IRBESARTAN
     Route: 065
  8. FERROUS SULFATE ANHYDROUS [Concomitant]
     Active Substance: FERROUS SULFATE ANHYDROUS
  9. LEVOTHYROXINE [Concomitant]
     Active Substance: LEVOTHYROXINE
  10. METOPROLOL [Concomitant]
     Active Substance: METOPROLOL
     Route: 065
  11. PANTOPRAZOLE [Concomitant]
     Active Substance: PANTOPRAZOLE

REACTIONS (3)
  - Depressed level of consciousness [Recovered/Resolved]
  - Dyskinesia [Recovered/Resolved]
  - Sedation complication [Recovered/Resolved]
